FAERS Safety Report 24935835 (Version 1)
Quarter: 2025Q1

REPORT INFORMATION
  Report Type: Spontaneous
  Country: CH (occurrence: CH)
  Receive Date: 20250206
  Receipt Date: 20250206
  Transmission Date: 20250409
  Serious: Yes (Other)
  Sender: NOVARTIS
  Company Number: CH-002147023-NVSC2025CH018667

PATIENT
  Age: 77 Year
  Sex: Male

DRUGS (2)
  1. OXCARBAZEPINE [Suspect]
     Active Substance: OXCARBAZEPINE
     Indication: Trigeminal neuralgia
     Dosage: 600 MG, QD
     Route: 065
  2. CANDESARTAN [Concomitant]
     Active Substance: CANDESARTAN
     Indication: Hypertension
     Dosage: 8 MG, QD
     Route: 065

REACTIONS (7)
  - Polyserositis [Unknown]
  - Pericardial effusion [Unknown]
  - Hepatic steatosis [Unknown]
  - Pleural effusion [Unknown]
  - Hepatic lesion [Unknown]
  - Hepatic cyst [Unknown]
  - Off label use [Unknown]
